FAERS Safety Report 20994790 (Version 1)
Quarter: 2022Q2

REPORT INFORMATION
  Report Type: Spontaneous
  Country: US (occurrence: None)
  Receive Date: 20220621
  Receipt Date: 20220621
  Transmission Date: 20220721
  Serious: Yes (Hospitalization, Other)
  Sender: FDA-Public Use
  Company Number: None

PATIENT
  Age: 71 Year
  Sex: Female
  Weight: 69.85 kg

DRUGS (3)
  1. SUMATRIPTAN [Suspect]
     Active Substance: SUMATRIPTAN
     Indication: Migraine
     Dates: start: 20220618
  2. BEBTELOVIMAB [Suspect]
     Active Substance: BEBTELOVIMAB
  3. MODERNA COVID-19 VACCINE [Suspect]
     Active Substance: ELASOMERAN

REACTIONS (5)
  - Hypertension [None]
  - Chest discomfort [None]
  - Chest pain [None]
  - Left ventricular dysfunction [None]
  - COVID-19 [None]

NARRATIVE: CASE EVENT DATE: 20220618
